FAERS Safety Report 5148097-8 (Version None)
Quarter: 2006Q4

REPORT INFORMATION
  Report Type: 
  Country: None (occurrence: None)
  Receive Date: 20061106
  Receipt Date: 20061023
  Transmission Date: 20070319
  Serious: Yes (Hospitalization)
  Sender: FDA-Public Use
  Company Number: 2006126101

PATIENT
  Age: 78 Year
  Sex: Male
  Weight: 64 kg

DRUGS (3)
  1. SUTENT [Suspect]
     Indication: RENAL CELL CARCINOMA STAGE UNSPECIFIED
     Dosage: 50 MG (50 MG, FREQUENCY: DAILY), ORAL
     Route: 048
     Dates: start: 20060824, end: 20061015
  2. CLONIDINE [Concomitant]
  3. MODURETIC 5-50 [Concomitant]

REACTIONS (5)
  - ABNORMAL FAECES [None]
  - EPISTAXIS [None]
  - HAEMOGLOBIN DECREASED [None]
  - SYNCOPE [None]
  - VOMITING [None]
